FAERS Safety Report 16126426 (Version 1)
Quarter: 2019Q2

REPORT INFORMATION
  Report Type: Spontaneous
  Country: US (occurrence: US)
  Receive Date: 20190326
  Receipt Date: 20190326
  Transmission Date: 20190711
  Serious: Yes (Hospitalization, Disabling)
  Sender: FDA-Public Use
  Company Number: None

PATIENT
  Age: 47 Year
  Sex: Female
  Weight: 68.04 kg

DRUGS (2)
  1. WOMENS MULTI VITAMIN [Concomitant]
  2. MIRENA [Suspect]
     Active Substance: LEVONORGESTREL
     Dates: start: 20181216, end: 20190326

REACTIONS (2)
  - Hysterosalpingo-oophorectomy [None]
  - Infection [None]

NARRATIVE: CASE EVENT DATE: 20190223
